FAERS Safety Report 11796023 (Version 1)
Quarter: 2015Q4

REPORT INFORMATION
  Report Type: Spontaneous
  Country: IT (occurrence: IT)
  Receive Date: 20151203
  Receipt Date: 20151203
  Transmission Date: 20160305
  Serious: Yes (Other)
  Sender: FDA-Public Use
  Company Number: IT-ACCORD-035843

PATIENT
  Age: 63 Year
  Sex: Female
  Weight: 76 kg

DRUGS (3)
  1. FLUOROURACIL ACCORD [Suspect]
     Active Substance: FLUOROURACIL
     Indication: BREAST CANCER
     Dosage: STRENGTH: 50 MG/ML?MAH: ACCORD HEALTHCARE LIMITED
     Route: 042
     Dates: start: 20151007
  2. ENDOXAN [Suspect]
     Active Substance: CYCLOPHOSPHAMIDE
     Indication: BREAST CANCER
     Dosage: STRENGTH: 1 G?MAH: BAXTER S.P.A.
     Route: 042
     Dates: start: 20151007
  3. METHOTREXATE PFIZER [Suspect]
     Active Substance: METHOTREXATE
     Indication: BREAST CANCER
     Dosage: STRENGTH: 50 MG?MAH:  PFIZER ITALIA S.R.L.
     Route: 042
     Dates: start: 20151007

REACTIONS (3)
  - Weight increased [Not Recovered/Not Resolved]
  - Palmar-plantar erythrodysaesthesia syndrome [Not Recovered/Not Resolved]
  - Visual acuity reduced [Not Recovered/Not Resolved]

NARRATIVE: CASE EVENT DATE: 20151028
